FAERS Safety Report 5628081-8 (Version None)
Quarter: 2008Q1

REPORT INFORMATION
  Report Type: 
  Country: None (occurrence: None)
  Receive Date: 20080215
  Receipt Date: 20080207
  Transmission Date: 20080703
  Serious: Yes (Hospitalization, Other)
  Sender: FDA-Public Use
  Company Number: US-PURDUE-USA_2008_0031496

PATIENT
  Age: 60 Year
  Sex: Male

DRUGS (2)
  1. OXYCONTIN [Suspect]
     Indication: DRUG USE FOR UNKNOWN INDICATION
  2. XANAX [Suspect]
     Indication: DRUG USE FOR UNKNOWN INDICATION

REACTIONS (4)
  - IMPAIRED DRIVING ABILITY [None]
  - MULTIPLE INJURIES [None]
  - ROAD TRAFFIC ACCIDENT [None]
  - SUBSTANCE ABUSE [None]
